FAERS Safety Report 24799173 (Version 1)
Quarter: 2025Q1

REPORT INFORMATION
  Report Type: Spontaneous
  Country: US (occurrence: US)
  Receive Date: 20250102
  Receipt Date: 20250102
  Transmission Date: 20250409
  Serious: No
  Sender: Kenvue
  Company Number: US-KENVUE-20241201203

PATIENT
  Sex: Male

DRUGS (4)
  1. ZYRTEC [Suspect]
     Active Substance: CETIRIZINE HYDROCHLORIDE
     Indication: Skin disorder
     Route: 065
  2. BRAFTOVI [Concomitant]
     Active Substance: ENCORAFENIB
     Indication: Malignant melanoma
     Route: 065
  3. MEKTOVI [Concomitant]
     Active Substance: BINIMETINIB
     Indication: Malignant melanoma
     Dosage: 30 MILLIGRAM, TWICE A DAY
     Route: 065
  4. MEKTOVI [Concomitant]
     Active Substance: BINIMETINIB
     Dosage: 2 TABLETS IN THE MORNING AND 1 TABLET AT NIGHT
     Route: 065

REACTIONS (3)
  - Nausea [Unknown]
  - Abnormal dreams [Unknown]
  - Product use in unapproved indication [Unknown]
